FAERS Safety Report 7524945-9 (Version None)
Quarter: 2011Q2

REPORT INFORMATION
  Report Type: 
  Country: None (occurrence: None)
  Receive Date: 20110606
  Receipt Date: 20110524
  Transmission Date: 20111010
  Serious: Yes (Hospitalization)
  Sender: FDA-Public Use
  Company Number: FR-ELI_LILLY_AND_COMPANY-FR201105006779

PATIENT
  Sex: Female

DRUGS (9)
  1. ZYPREXA [Suspect]
     Dosage: 5 MG, QD
     Route: 048
     Dates: start: 20101011, end: 20101019
  2. RELPAX [Concomitant]
     Indication: MIGRAINE
     Dosage: 40 MG, PRN
     Route: 048
  3. LITHIUM CARBONATE [Concomitant]
     Indication: BIPOLAR DISORDER
     Dosage: UNK
     Route: 048
     Dates: start: 20100920
  4. IMOVANE [Concomitant]
     Indication: INSOMNIA
     Dosage: 1 DF, QD
     Route: 048
     Dates: start: 20101014
  5. PROPRANOLOL [Concomitant]
     Dosage: 160 MG, QD
     Route: 048
     Dates: start: 20050101
  6. BROMAZEPAM [Concomitant]
     Indication: ANXIETY
     Dosage: UNK
     Route: 048
     Dates: start: 19990101
  7. LUTERAN [Concomitant]
     Dosage: 5 MG, QD
     Route: 048
  8. ZOLPIDEM [Concomitant]
     Indication: INSOMNIA
     Dosage: 10 MG, QD
     Route: 048
     Dates: start: 20101016
  9. ANAFRANIL [Concomitant]
     Indication: DEPRESSION
     Dosage: 200 MG, QD
     Route: 048
     Dates: start: 20100929, end: 20101110

REACTIONS (9)
  - RASH ERYTHEMATOUS [None]
  - INFLAMMATORY MARKER INCREASED [None]
  - NEUTROPHIL COUNT INCREASED [None]
  - FACE OEDEMA [None]
  - DISORIENTATION [None]
  - RASH MACULO-PAPULAR [None]
  - EOSINOPHILIA [None]
  - PRURITUS [None]
  - EYE IRRITATION [None]
